FAERS Safety Report 8446293 (Version 4)
Quarter: 2013Q3

REPORT INFORMATION
  Report Type: Spontaneous
  Country: US (occurrence: AU)
  Receive Date: 20120307
  Receipt Date: 20130702
  Transmission Date: 20140515
  Serious: Yes (Other)
  Sender: FDA-Public Use
  Company Number: PHHY2012AU019389

PATIENT
  Age: 35 Year
  Sex: Female

DRUGS (3)
  1. GILENYA [Suspect]
     Indication: MULTIPLE SCLEROSIS
     Dosage: 0.5 MG, QD
     Route: 048
     Dates: start: 201105, end: 20120229
  2. LEVLEN [Suspect]
     Route: 048
  3. MACRODANTIN [Concomitant]
     Dosage: 50 MG, QD

REACTIONS (2)
  - Drug interaction [Unknown]
  - Maternal exposure during pregnancy [Unknown]
